FAERS Safety Report 20524898 (Version 1)
Quarter: 2022Q1

REPORT INFORMATION
  Report Type: Spontaneous
  Country: JP (occurrence: JP)
  Receive Date: 20220228
  Receipt Date: 20220228
  Transmission Date: 20220423
  Serious: Yes (Hospitalization, Other)
  Sender: FDA-Public Use
  Company Number: JP-DSJP-DSJ-2022-106167

PATIENT
  Age: 80 Year
  Sex: Female

DRUGS (7)
  1. DENOSUMAB [Suspect]
     Active Substance: DENOSUMAB
     Indication: Osteoporosis
     Dosage: UNK
     Route: 065
  2. CALCIUM CARBONATE\CHOLECALCIFEROL\MAGNESIUM CARBONATE [Suspect]
     Active Substance: CALCIUM CARBONATE\CHOLECALCIFEROL\MAGNESIUM CARBONATE
     Indication: Product used for unknown indication
     Dosage: UNK
     Route: 065
  3. ATORVASTATIN CALCIUM [Suspect]
     Active Substance: ATORVASTATIN CALCIUM
     Indication: Product used for unknown indication
     Dosage: UNK
     Route: 065
  4. CELECOXIB [Suspect]
     Active Substance: CELECOXIB
     Indication: Product used for unknown indication
     Dosage: UNK
     Route: 065
  5. HERBALS [Suspect]
     Active Substance: HERBALS
     Indication: Product used for unknown indication
     Dosage: UNK
     Route: 065
  6. ELDECALCITOL [Suspect]
     Active Substance: ELDECALCITOL
     Indication: Product used for unknown indication
     Dosage: UNK
     Route: 065
  7. VIBEGRON [Suspect]
     Active Substance: VIBEGRON
     Indication: Product used for unknown indication
     Dosage: UNK
     Route: 065

REACTIONS (1)
  - Drug-induced liver injury [Recovered/Resolved]
